FAERS Safety Report 7158035-4 (Version None)
Quarter: 2010Q4

REPORT INFORMATION
  Report Type: 
  Country: None (occurrence: None)
  Receive Date: 20101214
  Receipt Date: 20100413
  Transmission Date: 20110411
  Serious: No
  Sender: FDA-Public Use
  Company Number: US-ASTRAZENECA-2010SE16213

PATIENT
  Age: 56 Year
  Sex: Female

DRUGS (4)
  1. CRESTOR [Suspect]
     Indication: BLOOD CHOLESTEROL INCREASED
     Route: 048
     Dates: start: 20070101
  2. LAMISIL [Concomitant]
  3. ACTONEL [Concomitant]
  4. LOVAZA [Concomitant]

REACTIONS (4)
  - ONYCHOMYCOSIS [None]
  - PRURITUS [None]
  - RASH GENERALISED [None]
  - TINEA INFECTION [None]
